FAERS Safety Report 14311690 (Version 1)
Quarter: 2017Q4

REPORT INFORMATION
  Report Type: Spontaneous
  Country: MA (occurrence: MA)
  Receive Date: 20171221
  Receipt Date: 20171221
  Transmission Date: 20180321
  Serious: Yes (Other)
  Sender: FDA-Public Use
  Company Number: MA-AMGEN-MARSP2017188062

PATIENT
  Age: 70 Year
  Sex: Female

DRUGS (8)
  1. GEMCITABINE [Suspect]
     Active Substance: GEMCITABINE\GEMCITABINE HYDROCHLORIDE
     Indication: METASTASES TO BONE
     Dosage: 750 MG/M2, Q4WK
     Route: 065
  2. SUNITINIB [Suspect]
     Active Substance: SUNITINIB
     Indication: DUCTAL ADENOCARCINOMA OF PANCREAS
  3. GEMCITABINE [Suspect]
     Active Substance: GEMCITABINE\GEMCITABINE HYDROCHLORIDE
     Indication: DUCTAL ADENOCARCINOMA OF PANCREAS
  4. XGEVA [Suspect]
     Active Substance: DENOSUMAB
     Indication: CLEAR CELL RENAL CELL CARCINOMA
     Dosage: 120 MG, Q4WK
     Route: 065
  5. SUNITINIB [Suspect]
     Active Substance: SUNITINIB
     Indication: METASTASES TO BONE
  6. XGEVA [Suspect]
     Active Substance: DENOSUMAB
     Indication: DUCTAL ADENOCARCINOMA OF PANCREAS
  7. GEMCITABINE [Suspect]
     Active Substance: GEMCITABINE\GEMCITABINE HYDROCHLORIDE
     Indication: CLEAR CELL RENAL CELL CARCINOMA
  8. SUNITINIB [Suspect]
     Active Substance: SUNITINIB
     Indication: CLEAR CELL RENAL CELL CARCINOMA
     Dosage: 37.5 MG, CYCLICAL
     Route: 065

REACTIONS (2)
  - Fatigue [Recovering/Resolving]
  - Hypertension [Recovering/Resolving]
